FAERS Safety Report 4376151-7 (Version None)
Quarter: 2004Q2

REPORT INFORMATION
  Report Type: 
  Country: None (occurrence: None)
  Receive Date: 20040607
  Receipt Date: 20040520
  Transmission Date: 20050107
  Serious: Yes (Life-Threatening)
  Sender: FDA-Public Use
  Company Number: 2004034389

PATIENT
  Sex: Female

DRUGS (1)
  1. CARDURA XL [Suspect]
     Indication: ILL-DEFINED DISORDER
     Dosage: 16 MG (16 MG, 1 IN 1 D), ORAL
     Route: 048

REACTIONS (3)
  - ASTHENIA [None]
  - CEREBROVASCULAR ACCIDENT [None]
  - DIZZINESS [None]
